FAERS Safety Report 9436569 (Version 1)
Quarter: 2013Q3

REPORT INFORMATION
  Report Type: Spontaneous
  Country: US (occurrence: US)
  Receive Date: 20130802
  Receipt Date: 20130802
  Transmission Date: 20140515
  Serious: No
  Sender: FDA-Public Use
  Company Number: US-OPTIMER-20130205

PATIENT
  Age: 75 Year
  Sex: Male

DRUGS (2)
  1. FIDAXOMICIN [Suspect]
     Indication: CLOSTRIDIUM DIFFICILE COLITIS
     Dosage: UNK
     Dates: start: 20121213, end: 20121223
  2. DOXYCYCLINE [Concomitant]
     Dosage: UNK
     Dates: start: 20121216, end: 20121219

REACTIONS (2)
  - Blood creatinine increased [Unknown]
  - Off label use [Unknown]
